FAERS Safety Report 14510194 (Version 2)
Quarter: 2018Q1

REPORT INFORMATION
  Report Type: Spontaneous
  Country: CN (occurrence: CN)
  Receive Date: 20180209
  Receipt Date: 20180212
  Transmission Date: 20180509
  Serious: Yes (Life-Threatening, Other)
  Sender: FDA-Public Use
  Company Number: CN-009507513-1802CHN001513

PATIENT
  Age: 64 Year
  Sex: Male
  Weight: 64 kg

DRUGS (1)
  1. DIPROSPAN [Suspect]
     Active Substance: BETAMETHASONE DIPROPIONATE\BETAMETHASONE SODIUM PHOSPHATE
     Indication: ASTHMA
     Dosage: 2 ML, QD
     Route: 030
     Dates: start: 20171130, end: 20171130

REACTIONS (1)
  - Shock symptom [Recovering/Resolving]

NARRATIVE: CASE EVENT DATE: 20171130
